FAERS Safety Report 8024373-6 (Version None)
Quarter: 2012Q1

REPORT INFORMATION
  Report Type: 
  Country: None (occurrence: None)
  Receive Date: 20120105
  Receipt Date: 20120105
  Transmission Date: 20120608
  Serious: Yes (Other)
  Sender: FDA-Public Use
  Company Number: None

PATIENT
  Age: 66 Year
  Sex: Male
  Weight: 83.007 kg

DRUGS (1)
  1. LIPITOR [Suspect]
     Indication: BLOOD CHOLESTEROL INCREASED
     Dosage: 10MG
     Route: 048
     Dates: start: 20110109, end: 20111230

REACTIONS (11)
  - FLANK PAIN [None]
  - ASTHENIA [None]
  - SCROTAL PAIN [None]
  - ERECTILE DYSFUNCTION [None]
  - MUSCULAR WEAKNESS [None]
  - GROIN PAIN [None]
  - ARTHRALGIA [None]
  - MUSCLE DISORDER [None]
  - LOSS OF LIBIDO [None]
  - BACK PAIN [None]
  - NECK PAIN [None]
